FAERS Safety Report 6115528-6 (Version None)
Quarter: 2009Q1

REPORT INFORMATION
  Report Type: 
  Country: None (occurrence: None)
  Receive Date: 20090313
  Receipt Date: 20090305
  Transmission Date: 20090719
  Serious: Yes (Hospitalization)
  Sender: FDA-Public Use
  Company Number: FI-ASTRAZENECA-2009SE01001

PATIENT
  Age: 74 Year
  Sex: Male

DRUGS (2)
  1. SEROQUEL [Suspect]
     Indication: HALLUCINATION
     Route: 048
  2. SEROQUEL [Suspect]
     Indication: DELUSION
     Route: 048

REACTIONS (4)
  - LUNG DISORDER [None]
  - OFF LABEL USE [None]
  - PULMONARY OEDEMA [None]
  - WEIGHT INCREASED [None]
